FAERS Safety Report 4489476-1 (Version None)
Quarter: 2004Q4

REPORT INFORMATION
  Report Type: 
  Country: None (occurrence: None)
  Receive Date: 20041101
  Receipt Date: 20041006
  Transmission Date: 20050328
  Serious: Yes (Death, Hospitalization)
  Sender: FDA-Public Use
  Company Number: PHEH2004US10755

PATIENT
  Age: 80 Year
  Sex: Female

DRUGS (21)
  1. CLOZARIL [Suspect]
     Indication: PSYCHOTIC DISORDER
     Dosage: 250 MG, QHS
     Route: 048
  2. DETROL [Concomitant]
  3. ALBUTEROL [Concomitant]
  4. CATAPRES [Concomitant]
  5. POTASSIUM CHLORIDE [Concomitant]
  6. BUSPAR [Concomitant]
  7. COLACE [Concomitant]
  8. FUROSEMIDE [Concomitant]
  9. LANOXIN [Concomitant]
  10. PEPCID [Concomitant]
  11. NITRO PATCH [Concomitant]
  12. NEOSPORIN [Concomitant]
  13. GLUCOTROL [Concomitant]
  14. GLUCOPHAG [Concomitant]
  15. ACTOS                                   /USA/ [Concomitant]
  16. INSULIN [Concomitant]
  17. OCUVITE [Concomitant]
  18. MILK OF MAGNESIA TAB [Concomitant]
  19. TYLENOL [Concomitant]
  20. RANITIDINE [Concomitant]
  21. LEVOTHYROXINE SODIUM [Concomitant]

REACTIONS (2)
  - CEREBROVASCULAR ACCIDENT [None]
  - PNEUMONIA [None]
